FAERS Safety Report 9717435 (Version 1)
Quarter: 2013Q4

REPORT INFORMATION
  Report Type: Spontaneous
  Country: US (occurrence: US)
  Receive Date: 20131127
  Receipt Date: 20131127
  Transmission Date: 20140711
  Serious: No
  Sender: FDA-Public Use
  Company Number: US-GILEAD-2008-0019664

PATIENT
  Sex: Female

DRUGS (5)
  1. LETAIRIS [Suspect]
     Indication: SYSTEMIC SCLEROSIS
     Route: 048
     Dates: start: 200807
  2. LETAIRIS [Suspect]
     Route: 048
     Dates: start: 20080103
  3. OXYCONTIN [Concomitant]
  4. MS CONTIN [Concomitant]
  5. CARISOPRODOL [Concomitant]

REACTIONS (1)
  - Oedema peripheral [Unknown]
